FAERS Safety Report 5604455-6 (Version None)
Quarter: 2008Q1

REPORT INFORMATION
  Report Type: 
  Country: None (occurrence: None)
  Receive Date: 20080123
  Receipt Date: 20080123
  Transmission Date: 20080703
  Serious: Yes (Hospitalization, Other)
  Sender: FDA-Public Use
  Company Number: None

PATIENT
  Age: 52 Year
  Sex: Female
  Weight: 74.8435 kg

DRUGS (2)
  1. SINGULAIR [Suspect]
     Indication: SINUSITIS
     Dates: start: 20041101, end: 20061101
  2. PROTONIX [Suspect]
     Indication: GASTROOESOPHAGEAL REFLUX DISEASE

REACTIONS (9)
  - ARTHRALGIA [None]
  - BLOOD PARATHYROID HORMONE INCREASED [None]
  - CHOKING [None]
  - GASTROOESOPHAGEAL REFLUX DISEASE [None]
  - INTERVERTEBRAL DISC DEGENERATION [None]
  - LETHARGY [None]
  - OSTEOPENIA [None]
  - OSTEOPOROSIS [None]
  - PARATHYROID TUMOUR BENIGN [None]
